FAERS Safety Report 14898626 (Version 1)
Quarter: 2018Q2

REPORT INFORMATION
  Report Type: Spontaneous
  Country: FR (occurrence: FR)
  Receive Date: 20180515
  Receipt Date: 20180515
  Transmission Date: 20180711
  Serious: Yes (Hospitalization)
  Sender: FDA-Public Use
  Company Number: FR-009507513-1805FRA004379

PATIENT
  Age: 63 Year
  Sex: Female
  Weight: 65 kg

DRUGS (15)
  1. AMOXICILLIN. [Suspect]
     Active Substance: AMOXICILLIN
     Indication: ENDOCARDITIS
     Dosage: 8 G, QD
     Route: 040
     Dates: start: 20180315, end: 20180406
  2. FLUINDIONE [Concomitant]
     Active Substance: FLUINDIONE
     Route: 048
  3. FUMAFER [Concomitant]
     Active Substance: FERROUS FUMARATE
     Route: 048
  4. FOLIC ACID. [Concomitant]
     Active Substance: FOLIC ACID
     Route: 048
  5. CUBICIN [Suspect]
     Active Substance: DAPTOMYCIN
     Indication: ENDOCARDITIS
     Dosage: 700 MG, QOD
     Route: 042
     Dates: start: 20180329, end: 20180410
  6. CUBICIN [Suspect]
     Active Substance: DAPTOMYCIN
     Dosage: 500 MG, QOD
     Route: 042
     Dates: start: 20180322, end: 20180327
  7. PLAQUENIL [Suspect]
     Active Substance: HYDROXYCHLOROQUINE SULFATE
     Indication: SYSTEMIC LUPUS ERYTHEMATOSUS
     Dosage: 400 MG, QD
     Route: 048
     Dates: start: 20180329, end: 20180405
  8. BISOCE [Concomitant]
     Active Substance: BISOPROLOL
     Route: 048
  9. AMLOR [Concomitant]
     Active Substance: AMLODIPINE BESYLATE
     Route: 048
  10. DIFFU-K [Concomitant]
     Active Substance: POTASSIUM CHLORIDE
     Route: 048
  11. ROSUVASTATINE [Concomitant]
     Active Substance: ROSUVASTATIN
     Route: 048
  12. EUPRESSYL [Concomitant]
     Active Substance: URAPIDIL
     Route: 048
  13. KARDEGIC [Concomitant]
     Active Substance: ASPIRIN DL-LYSINE
     Route: 048
  14. PANTOPRAZOLE [Suspect]
     Active Substance: PANTOPRAZOLE
     Indication: PROPHYLAXIS AGAINST GASTROINTESTINAL ULCER
     Dosage: 20 MG, QD
     Route: 048
     Dates: start: 20180327, end: 20180408
  15. FUROSEMIDE. [Suspect]
     Active Substance: FUROSEMIDE
     Indication: ACUTE KIDNEY INJURY
     Dosage: UNK
     Route: 048
     Dates: start: 20180315

REACTIONS (1)
  - Agranulocytosis [Recovered/Resolved]

NARRATIVE: CASE EVENT DATE: 20180409
